FAERS Safety Report 19887285 (Version 2)
Quarter: 2021Q4

REPORT INFORMATION
  Report Type: Spontaneous
  Country: CA (occurrence: CA)
  Receive Date: 20210928
  Receipt Date: 20211005
  Transmission Date: 20220303
  Serious: Yes (Hospitalization)
  Sender: FDA-Public Use
  Company Number: 2021A733832

PATIENT
  Age: 62 Year
  Sex: Male

DRUGS (6)
  1. SYMBICORT [Suspect]
     Active Substance: BUDESONIDE\FORMOTEROL FUMARATE DIHYDRATE
     Indication: Asthma
     Dosage: UNKNOWN
     Route: 055
  2. SYMBICORT [Suspect]
     Active Substance: BUDESONIDE\FORMOTEROL FUMARATE DIHYDRATE
     Indication: Asthma
     Dosage: 3 PUFFS TWICE A DAY
     Route: 055
  3. SINGULAIRE [Concomitant]
     Indication: Asthma
  4. NYSTATIN [Concomitant]
     Active Substance: NYSTATIN
     Indication: Candida infection
  5. REACTIN [Concomitant]
  6. VENTOLIN [Concomitant]
     Active Substance: ALBUTEROL SULFATE

REACTIONS (6)
  - Dyspnoea [Not Recovered/Not Resolved]
  - Candida infection [Recovered/Resolved]
  - Dysphonia [Not Recovered/Not Resolved]
  - Asthma [Unknown]
  - Exposure to fungus [Unknown]
  - Drug ineffective [Unknown]
